FAERS Safety Report 13886632 (Version 1)
Quarter: 2017Q3

REPORT INFORMATION
  Report Type: Spontaneous
  Country: US (occurrence: US)
  Receive Date: 20170821
  Receipt Date: 20170821
  Transmission Date: 20171127
  Serious: No
  Sender: FDA-Public Use
  Company Number: US-ASTRAZENECA-2017SE84825

PATIENT
  Age: 40 Year
  Sex: Female

DRUGS (2)
  1. MOVANTIK [Suspect]
     Active Substance: NALOXEGOL OXALATE
     Dosage: UNKNOWN
     Route: 048
  2. MORPHINE [Concomitant]
     Active Substance: MORPHINE
     Dosage: 100 OF MORPHINE EQUIVALENT PER DAY

REACTIONS (6)
  - Tremor [Unknown]
  - Dizziness [Unknown]
  - Asthenia [Unknown]
  - Diarrhoea [Unknown]
  - Nausea [Unknown]
  - Rhinorrhoea [Unknown]
